FAERS Safety Report 12451159 (Version 1)
Quarter: 2016Q2

REPORT INFORMATION
  Report Type: Spontaneous
  Country: US (occurrence: None)
  Receive Date: 20160608
  Receipt Date: 20160608
  Transmission Date: 20160815
  Serious: Yes (Life-Threatening, Hospitalization, Disabling)
  Sender: FDA-Public Use
  Company Number: None

PATIENT
  Age: 56 Year
  Sex: Female
  Weight: 52.16 kg

DRUGS (8)
  1. PEPCID [Concomitant]
     Active Substance: FAMOTIDINE
  2. FAMODITINE [Concomitant]
  3. CHANTIX [Suspect]
     Active Substance: VARENICLINE TARTRATE
     Indication: SMOKING CESSATION THERAPY
     Dosage: PILLS
     Route: 048
     Dates: start: 20160414
  4. COUMADIN [Concomitant]
     Active Substance: WARFARIN SODIUM
  5. WARFARIN [Concomitant]
     Active Substance: WARFARIN
  6. MULTI VITAMIN [Concomitant]
     Active Substance: VITAMINS
  7. LORATADINE. [Concomitant]
     Active Substance: LORATADINE
  8. MULTI VITAMIN [Concomitant]
     Active Substance: VITAMINS

REACTIONS (4)
  - Gastric disorder [None]
  - Cerebrovascular accident [None]
  - Unevaluable event [None]
  - Dyspnoea [None]

NARRATIVE: CASE EVENT DATE: 20160414
